FAERS Safety Report 9377688 (Version 1)
Quarter: 2013Q3

REPORT INFORMATION
  Report Type: Spontaneous
  Country: FR (occurrence: FR)
  Receive Date: 20130701
  Receipt Date: 20130701
  Transmission Date: 20140515
  Serious: Yes (Hospitalization)
  Sender: FDA-Public Use
  Company Number: FR-BRISTOL-MYERS SQUIBB COMPANY-19036326

PATIENT
  Age: 65 Year
  Sex: Male

DRUGS (13)
  1. TAXOL [Suspect]
     Indication: NEOPLASM MALIGNANT
     Route: 042
     Dates: start: 20130410
  2. CARBOPLATINE [Suspect]
     Indication: NEOPLASM MALIGNANT
     Dates: start: 20130410
  3. GASTROGRAFIN [Suspect]
     Indication: SCAN
     Dates: start: 20130416
  4. PIPERACILLIN [Concomitant]
     Dates: start: 20130418, end: 20130424
  5. APIDRA [Concomitant]
  6. BISOPROLOL FUMARATE [Concomitant]
  7. EXACYL [Concomitant]
     Dosage: 1DF: 1G/10ML
  8. PARIET [Concomitant]
  9. PRAVADUAL [Concomitant]
  10. TIORFAN [Concomitant]
  11. SACCHAROMYCES BOULARDII [Concomitant]
  12. PERFALGAN [Concomitant]
  13. ELUDRIL [Concomitant]

REACTIONS (1)
  - Renal failure acute [Recovering/Resolving]
